FAERS Safety Report 15587185 (Version 2)
Quarter: 2018Q4

REPORT INFORMATION
  Report Type: Report from Study
  Country: AU (occurrence: AU)
  Receive Date: 20181105
  Receipt Date: 20181114
  Transmission Date: 20190205
  Serious: Yes (Hospitalization)
  Sender: FDA-Public Use
  Company Number: AU-EXELIXIS-XL18418016723

PATIENT
  Age: 74 Year
  Sex: Female
  Weight: 65.3 kg

DRUGS (12)
  1. BLINDED XL184 [Suspect]
     Active Substance: CABOZANTINIB
     Indication: MEDULLARY THYROID CANCER
     Dosage: 140 OR 60 MG QD
     Route: 048
     Dates: start: 20181012
  2. ENDEP [Concomitant]
     Active Substance: AMITRIPTYLINE HYDROCHLORIDE
  3. FOLINIC ACID [Concomitant]
     Active Substance: LEUCOVORIN
  4. PROGESTERONE. [Concomitant]
     Active Substance: PROGESTERONE
  5. LUMIGAN [Concomitant]
     Active Substance: BIMATOPROST
  6. PANADEINE FORTE [Concomitant]
     Active Substance: ACETAMINOPHEN\CODEINE PHOSPHATE
  7. CALCIUM CARBONATE. [Concomitant]
     Active Substance: CALCIUM CARBONATE
  8. GLUCOSAMINE SULFATE [Concomitant]
     Active Substance: GLUCOSAMINE SULFATE
  9. BLINDED XL184 [Suspect]
     Active Substance: CABOZANTINIB
     Indication: MEDULLARY THYROID CANCER
     Dosage: 140 OR 60 MG QD
     Route: 048
     Dates: start: 20181012
  10. THYROXINE [Concomitant]
     Active Substance: LEVOTHYROXINE
  11. MAGNESIUM FORTE [Concomitant]
  12. CLARITIN [Concomitant]
     Active Substance: LORATADINE

REACTIONS (1)
  - Blood lactate dehydrogenase increased [Recovering/Resolving]

NARRATIVE: CASE EVENT DATE: 20181026
